FAERS Safety Report 8242129 (Version 3)
Quarter: 2013Q2

REPORT INFORMATION
  Report Type: Report from Study
  Country: BE (occurrence: BE)
  Receive Date: 20111114
  Receipt Date: 20130401
  Transmission Date: 20140414
  Serious: Yes (Hospitalization)
  Sender: FDA-Public Use
  Company Number: BE-BIOGENIDEC-2011BI042604

PATIENT
  Age: 21 Year
  Sex: Female

DRUGS (4)
  1. TYSABRI [Suspect]
     Indication: RELAPSING-REMITTING MULTIPLE SCLEROSIS
     Route: 042
     Dates: start: 20100707
  2. VESICARE [Concomitant]
  3. GABAPENTINE [Concomitant]
  4. CETIRIZINE [Concomitant]

REACTIONS (1)
  - Bladder disorder [Recovered/Resolved]
